FAERS Safety Report 6631040-X (Version None)
Quarter: 2010Q1

REPORT INFORMATION
  Report Type: 
  Country: None (occurrence: None)
  Receive Date: 20100311
  Receipt Date: 20100301
  Transmission Date: 20100710
  Serious: Yes (Hospitalization, Other)
  Sender: FDA-Public Use
  Company Number: US-ABBOTT-09P-163-0588401-00

PATIENT
  Sex: Male

DRUGS (20)
  1. HUMIRA [Suspect]
     Indication: RHEUMATOID ARTHRITIS
     Route: 058
     Dates: start: 20070601, end: 20090401
  2. HUMIRA [Suspect]
     Route: 058
  3. LEFLUNOMIDE [Concomitant]
     Indication: DRUG USE FOR UNKNOWN INDICATION
  4. PRILOSEC [Concomitant]
     Indication: DRUG USE FOR UNKNOWN INDICATION
  5. PRILOSEC [Concomitant]
  6. HYDROXYZINE [Concomitant]
     Indication: DRUG USE FOR UNKNOWN INDICATION
  7. PLAQUENIL [Concomitant]
     Indication: DRUG USE FOR UNKNOWN INDICATION
  8. SULFASALAZINE [Concomitant]
     Indication: DRUG USE FOR UNKNOWN INDICATION
  9. SULFASALAZINE [Concomitant]
  10. PREDNISONE TAPE [Concomitant]
     Indication: DRUG USE FOR UNKNOWN INDICATION
  11. PREDNISONE TAPE [Concomitant]
  12. VYTORIN [Concomitant]
     Indication: DRUG USE FOR UNKNOWN INDICATION
     Dosage: 10/40 DAILY
  13. LEVITRA [Concomitant]
     Indication: DRUG USE FOR UNKNOWN INDICATION
  14. HOMATROPINE EYE DROPS [Concomitant]
     Indication: DRUG USE FOR UNKNOWN INDICATION
  15. PREDNISOLONE [Concomitant]
     Indication: DRUG USE FOR UNKNOWN INDICATION
     Route: 047
  16. FLUOROMETHOLONE [Concomitant]
     Indication: DRUG USE FOR UNKNOWN INDICATION
  17. HYDROCODONE [Concomitant]
     Indication: DRUG USE FOR UNKNOWN INDICATION
  18. NAPROSYN [Concomitant]
     Indication: DRUG USE FOR UNKNOWN INDICATION
  19. OMEGA 3 FATTY ACIDS [Concomitant]
     Indication: DRUG USE FOR UNKNOWN INDICATION
  20. MULTI-VITAMIN [Concomitant]
     Indication: DRUG USE FOR UNKNOWN INDICATION

REACTIONS (38)
  - ARTHRALGIA [None]
  - ASPIRATION PLEURAL CAVITY [None]
  - BREATH SOUNDS ABNORMAL [None]
  - BRONCHITIS VIRAL [None]
  - CHEST PAIN [None]
  - CHILLS [None]
  - COUGH [None]
  - DECREASED ACTIVITY [None]
  - DIARRHOEA [None]
  - DYSPNOEA [None]
  - DYSPNOEA EXERTIONAL [None]
  - EAR DISCOMFORT [None]
  - ENLARGED UVULA [None]
  - EXOSTOSIS [None]
  - EYE PRURITUS [None]
  - FLATULENCE [None]
  - GRANULOMA [None]
  - HEADACHE [None]
  - JOINT SWELLING [None]
  - LUNG NEOPLASM [None]
  - MALAISE [None]
  - MUSCULOSKELETAL STIFFNESS [None]
  - MYCOBACTERIUM TEST POSITIVE [None]
  - NECROSIS [None]
  - NIGHT SWEATS [None]
  - OCULAR HYPERAEMIA [None]
  - OVERWEIGHT [None]
  - PAIN IN EXTREMITY [None]
  - PHOTOPHOBIA [None]
  - PLEURITIC PAIN [None]
  - POLYARTHRITIS [None]
  - PYREXIA [None]
  - RHEUMATOID ARTHRITIS [None]
  - SCLERAL HYPERAEMIA [None]
  - SYNOVITIS [None]
  - UVEITIS [None]
  - VISION BLURRED [None]
  - VITAMIN D DECREASED [None]
